FAERS Safety Report 9082300 (Version 1)
Quarter: 2013Q1

REPORT INFORMATION
  Report Type: Report from Study
  Country: US (occurrence: US)
  Receive Date: 20130130
  Receipt Date: 20130130
  Transmission Date: 20140127
  Serious: No
  Sender: FDA-Public Use
  Company Number: US-ABBOTT-12P-163-0931576-00

PATIENT
  Age: 46 Year
  Sex: Male

DRUGS (5)
  1. HUMIRA 40 MG/0.8 ML PEN [Suspect]
     Indication: COLITIS ULCERATIVE
     Dates: start: 20120430
  2. HUMIRA 40 MG/0.8 ML PEN [Suspect]
     Dosage: 40 MG EVERY TWO WEEKS
     Dates: start: 20120502
  3. APRISO [Concomitant]
     Indication: COLITIS ULCERATIVE
     Dosage: 4 CAPLETS DAILY
  4. PRAVASTATIN [Concomitant]
     Indication: BLOOD CHOLESTEROL
     Route: 048
  5. IMMODIUM LIKE PILL [Concomitant]
     Indication: FREQUENT BOWEL MOVEMENTS

REACTIONS (10)
  - Erythema [Not Recovered/Not Resolved]
  - Drug ineffective [Not Recovered/Not Resolved]
  - Injection site pain [Not Recovered/Not Resolved]
  - Rash [Recovered/Resolved]
  - Rash maculo-papular [Not Recovered/Not Resolved]
  - Rash pruritic [Not Recovered/Not Resolved]
  - Tenderness [Not Recovered/Not Resolved]
  - Frequent bowel movements [Unknown]
  - Frequent bowel movements [Not Recovered/Not Resolved]
  - Rash erythematous [Unknown]
